FAERS Safety Report 5247211-3 (Version None)
Quarter: 2007Q1

REPORT INFORMATION
  Report Type: 
  Country: None (occurrence: None)
  Receive Date: 20070220
  Receipt Date: 20070207
  Transmission Date: 20070707
  Serious: Yes (Other)
  Sender: FDA-Public Use
  Company Number: 2007US-05376

PATIENT
  Age: 23 Year
  Sex: Female

DRUGS (2)
  1. ISOTRETINOIN [Suspect]
     Indication: ACNE
     Dosage: 30 MG, BID, ORAL
     Route: 048
     Dates: start: 20060228, end: 20060810
  2. BIRTH CONTROL PILLS [Concomitant]

REACTIONS (4)
  - CONDITION AGGRAVATED [None]
  - DRY SKIN [None]
  - LIP DRY [None]
  - PSORIASIS [None]
